FAERS Safety Report 4901410-6 (Version None)
Quarter: 2006Q1

REPORT INFORMATION
  Report Type: 
  Country: None (occurrence: None)
  Receive Date: 20060201
  Receipt Date: 20060201
  Transmission Date: 20060701
  Serious: Yes (Other)
  Sender: FDA-Public Use
  Company Number: None

PATIENT
  Age: 13 Year
  Sex: Male
  Weight: 36.2878 kg

DRUGS (1)
  1. GENOTROPIN [Suspect]
     Indication: BLOOD GROWTH HORMONE
     Dosage: 1.8 DAILY 6 DAYS A WK SQ
     Route: 058
     Dates: start: 20040801, end: 20050923

REACTIONS (6)
  - ARTHROPATHY [None]
  - BONE GRAFT [None]
  - BONE LESION [None]
  - LIGAMENT INJURY [None]
  - LIMB DISCOMFORT [None]
  - MENISCUS LESION [None]
